FAERS Safety Report 5503141-0 (Version None)
Quarter: 2007Q4

REPORT INFORMATION
  Report Type: 
  Country: None (occurrence: None)
  Receive Date: 20071031
  Receipt Date: 20071025
  Transmission Date: 20080405
  Serious: Yes (Hospitalization)
  Sender: FDA-Public Use
  Company Number: FR-ELI_LILLY_AND_COMPANY-FR200710006486

PATIENT
  Age: 77 Year
  Sex: Female

DRUGS (5)
  1. FORTEO [Suspect]
     Indication: OSTEOPOROSIS
     Dosage: 20 UG, DAILY (1/D)
     Route: 058
     Dates: start: 20070316
  2. LEVOTHYROX [Concomitant]
  3. ZOCOR [Concomitant]
  4. DAFALGAN CODEINE [Concomitant]
  5. XANAX [Concomitant]

REACTIONS (1)
  - PAIN IN EXTREMITY [None]
